FAERS Safety Report 25016458 (Version 1)
Quarter: 2025Q1

REPORT INFORMATION
  Report Type: Spontaneous
  Country: FR (occurrence: FR)
  Receive Date: 20250227
  Receipt Date: 20250227
  Transmission Date: 20250408
  Serious: Yes (Hospitalization)
  Sender: TEVA
  Company Number: None

PATIENT
  Age: 70 Year
  Sex: Female
  Weight: 59.4 kg

DRUGS (6)
  1. FILGRASTIM [Suspect]
     Active Substance: FILGRASTIM
     Indication: Febrile neutropenia
     Dosage: (BACTERIA/ESCHERICHIA COLI), DOSE: 30 M[IU]
     Route: 058
     Dates: start: 20250121, end: 20250127
  2. TAZOBACTAM [Suspect]
     Active Substance: TAZOBACTAM
     Indication: Febrile neutropenia
     Route: 042
     Dates: start: 20250117, end: 20250129
  3. PIPERACILLIN [Suspect]
     Active Substance: PIPERACILLIN
     Indication: Febrile neutropenia
     Route: 042
     Dates: start: 20250117, end: 20250129
  4. ACYCLOVIR [Suspect]
     Active Substance: ACYCLOVIR
     Indication: Mucosal inflammation
     Route: 042
     Dates: start: 20250127, end: 20250129
  5. CASPOFUNGIN [Suspect]
     Active Substance: CASPOFUNGIN
     Indication: Mucosal inflammation
     Dosage: CASPOFUNGIN ACETATE (FUNGUS/GLAREA LOZOYENSIS)
     Route: 042
     Dates: start: 20250123, end: 20250129
  6. VANCOMYCIN [Suspect]
     Active Substance: VANCOMYCIN
     Indication: Febrile neutropenia
     Route: 042
     Dates: start: 20250117, end: 20250129

REACTIONS (1)
  - Rash maculo-papular [Recovering/Resolving]

NARRATIVE: CASE EVENT DATE: 20250129
